FAERS Safety Report 16463877 (Version 1)
Quarter: 2019Q2

REPORT INFORMATION
  Report Type: Spontaneous
  Country: FR (occurrence: FR)
  Receive Date: 20190621
  Receipt Date: 20190621
  Transmission Date: 20190711
  Serious: Yes (Other)
  Sender: FDA-Public Use
  Company Number: FR-SA-2019SA111281

PATIENT
  Age: 8 Year
  Sex: Male

DRUGS (1)
  1. CEREZYME [Suspect]
     Active Substance: IMIGLUCERASE
     Indication: GAUCHER^S DISEASE
     Dosage: 400 MG
     Route: 041

REACTIONS (10)
  - Weight decreased [Unknown]
  - Product preparation issue [Unknown]
  - Cardiac disorder [Unknown]
  - Osteoporosis [Unknown]
  - Angina pectoris [Unknown]
  - Abdominal distension [Not Recovered/Not Resolved]
  - Headache [Unknown]
  - Fatigue [Unknown]
  - Palpitations [Unknown]
  - Incorrect drug administration rate [Unknown]
